FAERS Safety Report 16134481 (Version 1)
Quarter: 2019Q1

REPORT INFORMATION
  Report Type: Spontaneous
  Country: FR (occurrence: FR)
  Receive Date: 20190329
  Receipt Date: 20190329
  Transmission Date: 20190418
  Serious: Yes (Other)
  Sender: FDA-Public Use
  Company Number: FR-PFIZER INC-2019132466

PATIENT
  Age: 28 Year
  Sex: Female

DRUGS (11)
  1. PROFENID [Suspect]
     Active Substance: KETOPROFEN
     Indication: CERVICAL RADICULOPATHY
     Dosage: UNK
     Route: 048
     Dates: start: 201812
  2. ESOMEPRAZOLE. [Concomitant]
     Active Substance: ESOMEPRAZOLE MAGNESIUM
     Dosage: UNK
     Route: 048
     Dates: start: 20181227
  3. LAROXYL [Concomitant]
     Active Substance: AMITRIPTYLINE HYDROCHLORIDE
     Dosage: UNK
     Route: 048
     Dates: start: 20181227
  4. XANAX [Suspect]
     Active Substance: ALPRAZOLAM
     Dosage: UNK
     Route: 048
     Dates: end: 20181228
  5. PARACETAMOL [Suspect]
     Active Substance: ACETAMINOPHEN
     Indication: CERVICAL RADICULOPATHY
     Dosage: UNK
     Route: 048
     Dates: end: 20181229
  6. OXYCONTIN [Concomitant]
     Active Substance: OXYCODONE HYDROCHLORIDE
     Indication: CERVICAL RADICULOPATHY
     Dosage: UNK
     Route: 048
  7. OXYNORM [Concomitant]
     Active Substance: OXYCODONE HYDROCHLORIDE
     Indication: CERVICAL RADICULOPATHY
     Dosage: UNK
     Route: 048
     Dates: start: 20181227
  8. IXPRIM [Suspect]
     Active Substance: ACETAMINOPHEN\TRAMADOL HYDROCHLORIDE
     Indication: CERVICAL RADICULOPATHY
     Dosage: UNK
     Route: 048
     Dates: start: 201812, end: 20181226
  9. MOVICOL [Concomitant]
     Active Substance: POLYETHYLENE GLYCOL 3350\POTASSIUM CHLORIDE\SODIUM BICARBONATE\SODIUM CHLORIDE
     Dosage: UNK
     Route: 048
     Dates: start: 20181228
  10. DECONTRACTYL (MEPHENESIN\METHYL NICOTINATE) [Suspect]
     Active Substance: MEPHENESIN\METHYL NICOTINATE
     Indication: CERVICAL RADICULOPATHY
     Dosage: UNK
     Route: 048
     Dates: start: 201812
  11. ACUPAN [Concomitant]
     Active Substance: NEFOPAM HYDROCHLORIDE
     Indication: CERVICAL RADICULOPATHY
     Dosage: UNK
     Route: 048
     Dates: start: 20181228

REACTIONS (1)
  - Hepatocellular injury [Recovering/Resolving]

NARRATIVE: CASE EVENT DATE: 20181228
